FAERS Safety Report 23361088 (Version 1)
Quarter: 2024Q1

REPORT INFORMATION
  Report Type: Spontaneous
  Country: US (occurrence: US)
  Receive Date: 20240103
  Receipt Date: 20240103
  Transmission Date: 20240409
  Serious: Yes (Other)
  Sender: FDA-Public Use
  Company Number: US-STERISCIENCE B.V.-2023-ST-000785

PATIENT
  Age: 39 Year
  Sex: Female

DRUGS (13)
  1. VANCOMYCIN [Suspect]
     Active Substance: VANCOMYCIN
     Indication: Septic shock
     Dosage: UNK
     Route: 065
  2. VANCOMYCIN [Suspect]
     Active Substance: VANCOMYCIN
     Indication: Evidence based treatment
  3. EPOPROSTENOL [Suspect]
     Active Substance: EPOPROSTENOL
     Indication: Acute respiratory distress syndrome
     Dosage: UNK
  4. INSULIN NOS [Concomitant]
     Active Substance: INSULIN NOS
     Indication: Hypertriglyceridaemia
     Dosage: INFUSION
     Route: 042
  5. VASOPRESSIN [Concomitant]
     Active Substance: VASOPRESSIN
     Indication: Haemodynamic instability
     Dosage: 0.04 INTERNATIONAL UNIT, QMINUTE
     Route: 065
  6. NOREPINEPHRINE [Concomitant]
     Active Substance: NOREPINEPHRINE
     Indication: Haemodynamic instability
     Dosage: 22 MICROGRAM, QMINUTE
  7. DEXTROSE\SODIUM CHLORIDE [Concomitant]
     Active Substance: DEXTROSE\SODIUM CHLORIDE
     Indication: Hypertriglyceridaemia
     Dosage: DRIP
     Route: 042
  8. EPINEPHRINE [Concomitant]
     Active Substance: EPINEPHRINE
     Indication: Haemodynamic instability
     Dosage: 5 MICROGRAM, QMINUTE
     Route: 065
  9. EPINEPHRINE [Concomitant]
     Active Substance: EPINEPHRINE
     Dosage: TITRATED DOWN TO 2 MICROGRAM, QMINUTE
     Route: 065
  10. HEPARIN [Concomitant]
     Active Substance: HEPARIN SODIUM
     Indication: Pulmonary embolism
     Dosage: INFUSION
     Route: 042
  11. CISATRACURIUM [Concomitant]
     Active Substance: CISATRACURIUM
     Indication: Sedation
     Dosage: UNK
     Route: 065
  12. ALTEPLASE [Concomitant]
     Active Substance: ALTEPLASE
     Indication: Pulmonary embolism
     Dosage: INFUSION
     Route: 042
  13. GEMFIBROZIL [Concomitant]
     Active Substance: GEMFIBROZIL
     Indication: Product used for unknown indication
     Dosage: UNK
     Route: 065

REACTIONS (1)
  - Thrombocytopenia [Unknown]
